FAERS Safety Report 7292828 (Version 4)
Quarter: 2017Q3

REPORT INFORMATION
  Report Type: Spontaneous
  Country: JP (occurrence: JP)
  Receive Date: 20100224
  Receipt Date: 20170810
  Transmission Date: 20171128
  Serious: Yes (Other)
  Sender: FDA-Public Use
  Company Number: JP-ROCHE-686816

PATIENT
  Age: 80 Year
  Sex: Male

DRUGS (6)
  1. LEVOFOLINATE [Concomitant]
     Active Substance: LEVOLEUCOVORIN CALCIUM
     Dosage: NOTE: W AND X2-4/SIX CYCLES.
     Route: 041
  2. IRINOTECAN HYDROCHLORIDE. [Concomitant]
     Active Substance: IRINOTECAN HYDROCHLORIDE
     Dosage: NOTE: W AND X2-4/SIX CYCLES
     Route: 041
  3. LEVOFOLINATE [Concomitant]
     Active Substance: LEVOLEUCOVORIN CALCIUM
     Route: 041
  4. 5-FU [Concomitant]
     Active Substance: FLUOROURACIL
     Dosage: NOTE: W AND X2-4/SIX CYCLES.
     Route: 041
  5. AVASTIN [Suspect]
     Active Substance: BEVACIZUMAB
     Indication: COLON CANCER METASTATIC
     Route: 041
  6. 5-FU [Concomitant]
     Active Substance: FLUOROURACIL
     Route: 041

REACTIONS (1)
  - Hepatocellular carcinoma [Recovering/Resolving]
